FAERS Safety Report 23318882 (Version 1)
Quarter: 2023Q4

REPORT INFORMATION
  Report Type: Report from Study
  Country: US (occurrence: US)
  Receive Date: 20231220
  Receipt Date: 20231220
  Transmission Date: 20240110
  Serious: Yes (Other)
  Sender: FDA-Public Use
  Company Number: US-002147023-NVSC2022US167662

PATIENT
  Age: 26 Year
  Sex: Female
  Weight: 103.4 kg

DRUGS (2)
  1. TREPROSTINIL [Suspect]
     Active Substance: TREPROSTINIL
     Indication: Pulmonary arterial hypertension
     Dosage: 60 NG/KG/MIN, CONT
     Route: 042
     Dates: start: 20210212
  2. TREPROSTINIL [Suspect]
     Active Substance: TREPROSTINIL
     Dosage: 80 NG/KG/ MIN
     Route: 042
     Dates: start: 20210228

REACTIONS (2)
  - Syncope [Unknown]
  - Complication associated with device [Unknown]

NARRATIVE: CASE EVENT DATE: 20231203
